FAERS Safety Report 4503731-8 (Version None)
Quarter: 2004Q4

REPORT INFORMATION
  Report Type: 
  Country: None (occurrence: None)
  Receive Date: 20041115
  Receipt Date: 20041029
  Transmission Date: 20050328
  Serious: Yes (Death)
  Sender: FDA-Public Use
  Company Number: 9156

PATIENT
  Age: 58 Year
  Sex: Female

DRUGS (4)
  1. DOXORUBICIN HYDROCHLORIDE [Suspect]
     Dosage: 65 MG ONCE, IV
     Route: 042
     Dates: start: 20041001, end: 20041001
  2. VINCRISTINE [Suspect]
     Dosage: 2 MG ONCE, IV
     Route: 042
     Dates: start: 20041001, end: 20041001
  3. CYCLOPHOSPHAMIDE [Suspect]
     Indication: ADENOCARCINOMA
     Dosage: 1230 MG ONCE, IV
     Route: 042
     Dates: start: 20041001, end: 20041001
  4. PIPERACILLIN SODIUM  W/ TAZOBACTAM SODIUM [Concomitant]

REACTIONS (1)
  - NEUTROPENIC SEPSIS [None]
